FAERS Safety Report 9891936 (Version 2)
Quarter: 2014Q1

REPORT INFORMATION
  Report Type: Spontaneous
  Country: US (occurrence: US)
  Receive Date: 20140212
  Receipt Date: 20140218
  Transmission Date: 20141002
  Serious: Yes (Other)
  Sender: FDA-Public Use
  Company Number: US-RB-062911-14

PATIENT
  Age: 49 Year
  Sex: Female
  Weight: 88 kg

DRUGS (1)
  1. MUCINEX DM [Suspect]
     Indication: PRODUCT USED FOR UNKNOWN INDICATION
     Dosage: TOOK 1ST TABLET ON AN UNKNOWN DATE + ANOTHER TABLET MORE THAN 12 HOURS SINCE THE 1ST TABLET (BY 2PM)
     Route: 048
     Dates: start: 20140131

REACTIONS (4)
  - Eyelid oedema [Not Recovered/Not Resolved]
  - Lacrimation increased [Unknown]
  - Hypoaesthesia [Unknown]
  - Hypersensitivity [Unknown]
